FAERS Safety Report 4754542-X (Version None)
Quarter: 2005Q3

REPORT INFORMATION
  Report Type: 
  Country: None (occurrence: None)
  Receive Date: 20050829
  Receipt Date: 20050202
  Transmission Date: 20060218
  Serious: Yes (Other)
  Sender: FDA-Public Use
  Company Number: PHEH2005US01596

PATIENT
  Age: 57 Year
  Sex: Male
  Weight: 76 kg

DRUGS (9)
  1. ZOMETA [Suspect]
     Indication: MULTIPLE MYELOMA
     Dosage: 4 MG, QMO
     Dates: start: 20021007, end: 20041203
  2. VERAPAMIL [Concomitant]
     Indication: HYPERTENSION
     Dosage: 180 MG, QD
     Route: 048
     Dates: start: 19951116
  3. ARTIFICIAL TEARS [Concomitant]
  4. SENOKOT /USA/ [Concomitant]
  5. COLACE [Concomitant]
     Indication: CONSTIPATION
     Dosage: 200 MG, BID
     Route: 048
     Dates: start: 20001013
  6. CALCIUM WITH VITAMIN D [Concomitant]
  7. AMITRIPTYLINE HCL [Concomitant]
  8. OXYCODONE [Concomitant]
     Indication: PAIN MANAGEMENT
     Dosage: 5 MG, Q4H PRN
     Route: 048
     Dates: start: 20050224
  9. OXYCODONE [Concomitant]
     Dosage: 10 MG, Q4H PRN
     Route: 048
     Dates: start: 20050224

REACTIONS (5)
  - ASEPTIC NECROSIS BONE [None]
  - BONE EROSION [None]
  - DENTAL TREATMENT [None]
  - IMPAIRED HEALING [None]
  - TOOTH ABSCESS [None]
